FAERS Safety Report 9422321 (Version 1)
Quarter: 2013Q3

REPORT INFORMATION
  Report Type: Report from Study
  Country: US (occurrence: US)
  Receive Date: 20130726
  Receipt Date: 20130726
  Transmission Date: 20140515
  Serious: Yes (Hospitalization)
  Sender: FDA-Public Use
  Company Number: US-ROCHE-1250067

PATIENT
  Age: 57 Year
  Sex: Male

DRUGS (4)
  1. BEVACIZUMAB [Suspect]
     Indication: RENAL CELL CARCINOMA
     Route: 042
     Dates: start: 20130429
  2. TRC105 [Suspect]
     Indication: RENAL CELL CARCINOMA
     Dosage: LAST DOSE PRIOR TO THE ADVERSE EVENT: 06/MAY/2013.
     Route: 042
     Dates: start: 20130429
  3. TRC105 [Suspect]
     Route: 042
  4. TRC105 [Suspect]
     Route: 042

REACTIONS (1)
  - Failure to thrive [Not Recovered/Not Resolved]
